FAERS Safety Report 4360877-5 (Version None)
Quarter: 2004Q2

REPORT INFORMATION
  Report Type: 
  Country: None (occurrence: None)
  Receive Date: 20040517
  Receipt Date: 20040505
  Transmission Date: 20050107
  Serious: Yes (Life-Threatening)
  Sender: FDA-Public Use
  Company Number: GB-JNJFOC-20031102700

PATIENT
  Age: 81 Year
  Sex: Female

DRUGS (11)
  1. RISPERDAL [Suspect]
     Indication: HALLUCINATION
     Dosage: 0.5 MG, IN 1 DAY, ORAL
     Route: 048
     Dates: start: 20030420, end: 20030422
  2. RISPERDAL [Suspect]
     Indication: MANIA
     Dosage: 0.5 MG, IN 1 DAY, ORAL
     Route: 048
     Dates: start: 20030420, end: 20030422
  3. RISPERDAL [Suspect]
     Indication: HALLUCINATION
     Dosage: 0.5 MG, IN 1 DAY, ORAL
     Route: 048
     Dates: start: 20030320
  4. RISPERDAL [Suspect]
     Indication: MANIA
     Dosage: 0.5 MG, IN 1 DAY, ORAL
     Route: 048
     Dates: start: 20030320
  5. LISINOPRIL [Concomitant]
  6. ASPIRIN [Concomitant]
  7. AMIODARONE HCL [Concomitant]
  8. HYDROCORTISONE [Concomitant]
  9. OMEPRAZOLE [Concomitant]
  10. TRANSDERM NITRO (GLYCERYL TRINITRATE) [Concomitant]
  11. FUROSEMIDE [Concomitant]

REACTIONS (6)
  - ABASIA [None]
  - DRUG LEVEL INCREASED [None]
  - DYSSTASIA [None]
  - GENERAL PHYSICAL HEALTH DETERIORATION [None]
  - INCONTINENCE [None]
  - RESPIRATORY RATE DECREASED [None]
